FAERS Safety Report 9506141 (Version 1)
Quarter: 2013Q1

REPORT INFORMATION
  Report Type: Spontaneous
  Country: US (occurrence: None)
  Receive Date: 20130301
  Receipt Date: 20130301
  Transmission Date: 20140127
  Serious: Yes (Hospitalization)
  Sender: FDA-Public Use
  Company Number: PHEH2012US012533

PATIENT
  Sex: Female

DRUGS (1)
  1. TEGRETOL (CARBAMAZEPINE) UNKNOWN [Suspect]
     Indication: SCHIZOAFFECTIVE DISORDER

REACTIONS (1)
  - Urticaria [None]
